FAERS Safety Report 13856559 (Version 1)
Quarter: 2017Q3

REPORT INFORMATION
  Report Type: Spontaneous
  Country: US (occurrence: US)
  Receive Date: 20170810
  Receipt Date: 20170810
  Transmission Date: 20171127
  Serious: No
  Sender: FDA-Public Use
  Company Number: US-ROCHE-1333118

PATIENT
  Age: 55 Year
  Sex: Male

DRUGS (3)
  1. TYLENOL [Concomitant]
     Active Substance: ACETAMINOPHEN
  2. TAMIFLU [Suspect]
     Active Substance: OSELTAMIVIR PHOSPHATE
     Indication: INFLUENZA
     Route: 065
     Dates: start: 20140109, end: 20140110
  3. ADVIL [Concomitant]
     Active Substance: IBUPROFEN

REACTIONS (7)
  - Decreased appetite [Unknown]
  - Retching [Unknown]
  - Thirst [Unknown]
  - Vomiting [Unknown]
  - Dry throat [Unknown]
  - Pyrexia [Unknown]
  - Chills [Unknown]

NARRATIVE: CASE EVENT DATE: 20140109
